FAERS Safety Report 9191528 (Version 4)
Quarter: 2013Q2

REPORT INFORMATION
  Report Type: Spontaneous
  Country: JP (occurrence: JP)
  Receive Date: 20130326
  Receipt Date: 20130521
  Transmission Date: 20140414
  Serious: Yes (Hospitalization, Other)
  Sender: FDA-Public Use
  Company Number: JP-PFIZER INC-2013093449

PATIENT
  Age: 71 Year
  Sex: Female

DRUGS (2)
  1. XALATAN [Suspect]
     Indication: GLAUCOMA
     Dosage: ONE DROP/1X/DAY
     Route: 047
  2. CEPHADOL [Concomitant]
     Indication: DIZZINESS
     Dosage: 25 MG, UNK
     Route: 048

REACTIONS (2)
  - Cardiac disorder [Unknown]
  - Dizziness [Unknown]
